FAERS Safety Report 13472050 (Version 1)
Quarter: 2017Q2

REPORT INFORMATION
  Report Type: Report from Study
  Country: US (occurrence: US)
  Receive Date: 20170424
  Receipt Date: 20170424
  Transmission Date: 20170830
  Serious: Yes (Hospitalization)
  Sender: FDA-Public Use
  Company Number: US-GILEAD-2017-0269054

PATIENT
  Age: 53 Year
  Sex: Female

DRUGS (6)
  1. AMBRISENTAN [Suspect]
     Active Substance: AMBRISENTAN
     Indication: PULMONARY HYPERTENSION
     Dosage: 5 MG, QD
     Route: 065
  2. ELIQUIS [Concomitant]
     Active Substance: APIXABAN
  3. CLONIDINE. [Concomitant]
     Active Substance: CLONIDINE
  4. CARVEDILOL. [Concomitant]
     Active Substance: CARVEDILOL
  5. DILTIAZEM. [Concomitant]
     Active Substance: DILTIAZEM
  6. TERAZOSIN [Concomitant]
     Active Substance: TERAZOSIN\TERAZOSIN HYDROCHLORIDE

REACTIONS (2)
  - Hypotension [Unknown]
  - Malaise [Unknown]
